FAERS Safety Report 16628392 (Version 1)
Quarter: 2019Q3

REPORT INFORMATION
  Report Type: Spontaneous
  Country: US (occurrence: US)
  Receive Date: 20190612
  Receipt Date: 20190612
  Transmission Date: 20191004
  Serious: No
  Sender: FDA-Public Use
  Company Number: None

PATIENT
  Age: 85 Year
  Sex: Male

DRUGS (1)
  1. REPATHA [Suspect]
     Active Substance: EVOLOCUMAB
     Dates: start: 201806

REACTIONS (3)
  - Product dose omission [None]
  - Urinary tract infection [None]
  - Mental status changes [None]

NARRATIVE: CASE EVENT DATE: 20190612
